FAERS Safety Report 21184844 (Version 1)
Quarter: 2022Q3

REPORT INFORMATION
  Report Type: Spontaneous
  Country: US (occurrence: None)
  Receive Date: 20220808
  Receipt Date: 20220808
  Transmission Date: 20221027
  Serious: Yes (Hospitalization, Other)
  Sender: FDA-Public Use
  Company Number: US-Hikma Pharmaceuticals USA Inc.-US-H14001-22-01960

PATIENT

DRUGS (1)
  1. PREDNISONE [Suspect]
     Active Substance: PREDNISONE
     Indication: Product used for unknown indication
     Dosage: UNKNOWN
     Route: 065

REACTIONS (17)
  - Thyroid cancer [Unknown]
  - Renal cancer [Unknown]
  - Joint swelling [Unknown]
  - Peripheral swelling [Unknown]
  - Fatigue [Unknown]
  - Butterfly rash [Unknown]
  - Alopecia [Unknown]
  - Swelling face [Unknown]
  - Pain [Unknown]
  - Intra-abdominal fluid collection [Unknown]
  - Renal impairment [Unknown]
  - Dialysis [Unknown]
  - Renal transplant [Unknown]
  - Cataract [Unknown]
  - Abdominal distension [Unknown]
  - Illness [Unknown]
  - Drug ineffective [Unknown]
